FAERS Safety Report 18732436 (Version 1)
Quarter: 2021Q1

REPORT INFORMATION
  Report Type: Spontaneous
  Country: US (occurrence: US)
  Receive Date: 20210112
  Receipt Date: 20210112
  Transmission Date: 20210419
  Serious: Yes (Hospitalization)
  Sender: FDA-Public Use
  Company Number: US-CUMBERLAND-2021-US-000002

PATIENT
  Age: 39 Year
  Sex: Male

DRUGS (3)
  1. METHYLNALTREXONE [Suspect]
     Active Substance: METHYLNALTREXONE
  2. KRISTALOSE [Suspect]
     Active Substance: LACTULOSE
     Route: 054
  3. NEOSTIGMINE. [Concomitant]
     Active Substance: NEOSTIGMINE METHYLSULFATE

REACTIONS (2)
  - Drug ineffective [Recovered/Resolved]
  - Intestinal pseudo-obstruction [Recovered/Resolved]
